FAERS Safety Report 25472027 (Version 1)
Quarter: 2025Q2

REPORT INFORMATION
  Report Type: Report from Study
  Country: US (occurrence: US)
  Receive Date: 20250624
  Receipt Date: 20250624
  Transmission Date: 20250717
  Serious: No
  Sender: ACADIA PHARMACEUTICALS
  Company Number: US-ACADIA PHARMACEUTICALS INC.-ACA-2025-PIM-007330

PATIENT
  Sex: Male

DRUGS (15)
  1. NUPLAZID [Suspect]
     Active Substance: PIMAVANSERIN TARTRATE
     Indication: Parkinson^s disease
     Dosage: 34 MILLIGRAM, QD
     Route: 048
     Dates: start: 20190319
  2. AMIODARONE [Concomitant]
     Active Substance: AMIODARONE
  3. BUPROPION HYDROCHLORIDE [Concomitant]
     Active Substance: BUPROPION HYDROCHLORIDE
  4. CALCIUM CARBONATE [Concomitant]
     Active Substance: CALCIUM CARBONATE
  5. ELIQUIS [Concomitant]
     Active Substance: APIXABAN
  6. FUROSEMIDE [Concomitant]
     Active Substance: FUROSEMIDE
  7. GABAPENTIN [Concomitant]
     Active Substance: GABAPENTIN
  8. INDAPAMIDE [Concomitant]
     Active Substance: INDAPAMIDE
  9. LAMOTRIGINE [Concomitant]
     Active Substance: LAMOTRIGINE
  10. LEVOTHYROXINE [Concomitant]
     Active Substance: LEVOTHYROXINE
  11. METOPROLOL [Concomitant]
     Active Substance: METOPROLOL
  12. POTASSIUM CHLORIDE [Concomitant]
     Active Substance: POTASSIUM CHLORIDE
  13. SEROQUEL [Concomitant]
     Active Substance: QUETIAPINE FUMARATE
  14. SERTRALINE [Concomitant]
     Active Substance: SERTRALINE HYDROCHLORIDE
  15. VITAMIN D3 [Concomitant]
     Active Substance: CHOLECALCIFEROL

REACTIONS (2)
  - Tremor [Not Recovered/Not Resolved]
  - Condition aggravated [Not Recovered/Not Resolved]
